FAERS Safety Report 5600451-3 (Version None)
Quarter: 2008Q1

REPORT INFORMATION
  Report Type: 
  Country: None (occurrence: None)
  Receive Date: 20080118
  Receipt Date: 20080110
  Transmission Date: 20080703
  Serious: Yes (Other)
  Sender: FDA-Public Use
  Company Number: 2007SP022764

PATIENT
  Age: 46 Year
  Sex: Male

DRUGS (3)
  1. NOXAFIL [Suspect]
     Indication: FUSARIUM INFECTION
     Dosage: 400 MG; BID; PO
     Route: 048
  2. CHEMOTHERAPY [Concomitant]
  3. AMBISOME [Concomitant]

REACTIONS (6)
  - ARTHRITIS BACTERIAL [None]
  - FUSARIUM INFECTION [None]
  - JOINT EFFUSION [None]
  - NEUTROPENIA [None]
  - SINUSITIS [None]
  - SKIN LESION [None]
